FAERS Safety Report 4659127-1 (Version None)
Quarter: 2005Q2

REPORT INFORMATION
  Report Type: 
  Country: None (occurrence: None)
  Receive Date: 20050511
  Receipt Date: 20050503
  Transmission Date: 20051028
  Serious: Yes (Life-Threatening)
  Sender: FDA-Public Use
  Company Number: 200514007GDDC

PATIENT
  Age: 35 Year
  Sex: Male
  Weight: 80 kg

DRUGS (7)
  1. FRUSEMIDE [Suspect]
     Indication: OEDEMA
     Route: 048
     Dates: start: 20050101, end: 20050203
  2. SPIRONOLACTONE [Suspect]
     Indication: OEDEMA
     Dosage: DOSE: UNK
     Route: 048
     Dates: start: 20050101, end: 20050203
  3. OMEPRAZOLE [Concomitant]
     Indication: ABDOMINAL DISCOMFORT
     Route: 048
  4. BUMETANIDE [Concomitant]
     Route: 048
  5. ERYTHROMYCIN [Concomitant]
     Indication: INFECTION
     Route: 048
  6. CO-CODAMOL [Concomitant]
     Indication: PAIN
     Route: 048
  7. THIAMINE [Concomitant]
     Indication: HEPATITIS
     Dosage: DOSE: UNK
     Route: 048

REACTIONS (4)
  - GENITAL LESION [None]
  - HEPATITIS [None]
  - INCOHERENT [None]
  - STEVENS-JOHNSON SYNDROME [None]
